FAERS Safety Report 4927686-7 (Version None)
Quarter: 2006Q1

REPORT INFORMATION
  Report Type: 
  Country: None (occurrence: None)
  Receive Date: 20060228
  Receipt Date: 20041109
  Transmission Date: 20060701
  Serious: Yes (Hospitalization, Other)
  Sender: FDA-Public Use
  Company Number: DE-MERCK-0411DEU00166

PATIENT
  Age: 59 Year
  Sex: Male
  Weight: 82 kg

DRUGS (2)
  1. VIOXX [Suspect]
     Indication: SPORTS INJURY
     Route: 048
     Dates: start: 20000601, end: 20021025
  2. IBUPROFEN [Concomitant]
     Route: 065

REACTIONS (8)
  - ANGINA PECTORIS [None]
  - AUTONOMIC NERVOUS SYSTEM IMBALANCE [None]
  - CORONARY ARTERY DISEASE [None]
  - DEPRESSION [None]
  - FEAR [None]
  - MYOCARDIAL INFARCTION [None]
  - STRESS [None]
  - TENDON RUPTURE [None]
